FAERS Safety Report 4325617-4 (Version None)
Quarter: 2004Q1

REPORT INFORMATION
  Report Type: 
  Country: None (occurrence: None)
  Receive Date: 20040323
  Receipt Date: 20040310
  Transmission Date: 20041129
  Serious: Yes (Life-Threatening)
  Sender: FDA-Public Use
  Company Number: 04P-144-0253174-00

PATIENT

DRUGS (3)
  1. FERO GRADUMET TABLETS (FERO-GRADUMET FILMTAB) (FERROUS SULFATE) (FERRO [Suspect]
  2. LOVASTATIN [Concomitant]
  3. TIMOGEL [Concomitant]

REACTIONS (1)
  - RESPIRATORY FAILURE [None]
